FAERS Safety Report 25090763 (Version 1)
Quarter: 2025Q1

REPORT INFORMATION
  Report Type: Report from Study
  Country: PL (occurrence: PL)
  Receive Date: 20250318
  Receipt Date: 20250318
  Transmission Date: 20250409
  Serious: Yes (Other)
  Sender: PFIZER
  Company Number: PL-TAKEDA-2023TUS017573

PATIENT
  Age: 56 Year
  Sex: Male
  Weight: 80 kg

DRUGS (2)
  1. BRENTUXIMAB VEDOTIN [Suspect]
     Active Substance: BRENTUXIMAB VEDOTIN
     Indication: Cutaneous T-cell lymphoma
     Dosage: 150 MG, EVERY 3 WEEKS
     Route: 042
     Dates: start: 20220301
  2. BRENTUXIMAB VEDOTIN [Suspect]
     Active Substance: BRENTUXIMAB VEDOTIN
     Dosage: 95 MG, EVERY 3 WEEKS
     Route: 042
     Dates: start: 20220301

REACTIONS (6)
  - Polyneuropathy [Not Recovered/Not Resolved]
  - Hepatotoxicity [Not Recovered/Not Resolved]
  - Cough [Recovered/Resolved]
  - Atrial enlargement [Recovering/Resolving]
  - Aortic dilatation [Recovering/Resolving]
  - Electromyogram abnormal [Recovering/Resolving]

NARRATIVE: CASE EVENT DATE: 20220525
